FAERS Safety Report 18888591 (Version 2)
Quarter: 2021Q1

REPORT INFORMATION
  Report Type: Report from Study
  Country: RS (occurrence: RS)
  Receive Date: 20210212
  Receipt Date: 20210315
  Transmission Date: 20210420
  Serious: Yes (Other)
  Sender: FDA-Public Use
  Company Number: RS-JNJFOC-20210210053

PATIENT
  Age: 62 Year
  Sex: Female
  Weight: 78 kg

DRUGS (15)
  1. SELEXIPAG [Suspect]
     Active Substance: SELEXIPAG
     Route: 048
     Dates: start: 20140811, end: 20140817
  2. SELEXIPAG [Suspect]
     Active Substance: SELEXIPAG
     Route: 048
     Dates: start: 20140818, end: 20140824
  3. SILDENAFIL. [Concomitant]
     Active Substance: SILDENAFIL
     Indication: PULMONARY ARTERIAL HYPERTENSION
     Route: 048
     Dates: start: 20100316
  4. LOMETAZID [Concomitant]
     Dates: start: 20100118
  5. SELEXIPAG [Suspect]
     Active Substance: SELEXIPAG
     Route: 048
     Dates: start: 20140825, end: 20190328
  6. SELEXIPAG [Suspect]
     Active Substance: SELEXIPAG
     Indication: PULMONARY ARTERIAL HYPERTENSION
     Route: 048
     Dates: start: 20140714, end: 20140720
  7. PHLEBODIA [Concomitant]
     Active Substance: DIOSMIN
     Indication: VARICOSE VEIN
     Route: 048
     Dates: start: 20161025
  8. SELEXIPAG [Suspect]
     Active Substance: SELEXIPAG
     Route: 048
     Dates: start: 20140721, end: 20140727
  9. SELEXIPAG [Suspect]
     Active Substance: SELEXIPAG
     Route: 048
     Dates: start: 20190329, end: 20201103
  10. ENALAPRIL [Concomitant]
     Active Substance: ENALAPRIL
     Indication: HYPERTENSION
     Dates: start: 201104
  11. SELEXIPAG [Suspect]
     Active Substance: SELEXIPAG
     Route: 048
     Dates: start: 20140728, end: 20140728
  12. SELEXIPAG [Suspect]
     Active Substance: SELEXIPAG
     Route: 048
     Dates: start: 20140729, end: 20140810
  13. BISOPROLOL [Concomitant]
     Active Substance: BISOPROLOL
     Indication: HYPERTENSION
     Dates: start: 201104
  14. DICUMAROL [Concomitant]
     Active Substance: DICUMAROL
     Dates: start: 20091216
  15. HEPARIN SODIUM. [Concomitant]
     Active Substance: HEPARIN SODIUM
     Indication: VARICOSE VEIN
     Route: 061
     Dates: start: 20161018

REACTIONS (1)
  - Pseudolymphoma [Not Recovered/Not Resolved]

NARRATIVE: CASE EVENT DATE: 20201103
